FAERS Safety Report 5347434-9 (Version None)
Quarter: 2007Q2

REPORT INFORMATION
  Report Type: 
  Country: None (occurrence: None)
  Receive Date: 20070604
  Receipt Date: 20070604
  Transmission Date: 20071010
  Serious: Yes (Other)
  Sender: FDA-Public Use
  Company Number: None

PATIENT
  Sex: Female
  Weight: 137.4399 kg

DRUGS (2)
  1. MAGNEVIST [Suspect]
     Indication: NUCLEAR MAGNETIC RESONANCE IMAGING BRAIN
     Dosage: ONE TIME ONLY
     Dates: start: 20041209, end: 20041209
  2. MAGNEVIST [Suspect]
     Indication: SCAN WITH CONTRAST
     Dosage: ONE TIME ONLY
     Dates: start: 20041209, end: 20041209

REACTIONS (6)
  - HYPERKERATOSIS [None]
  - NEOVASCULARISATION [None]
  - NEPHROGENIC FIBROSING DERMOPATHY [None]
  - SKIN FIBROSIS [None]
  - SKIN LESION [None]
  - SKIN NODULE [None]
